FAERS Safety Report 8026144-3 (Version None)
Quarter: 2012Q1

REPORT INFORMATION
  Report Type: 
  Country: None (occurrence: None)
  Receive Date: 20120105
  Receipt Date: 20110207
  Transmission Date: 20120608
  Serious: No
  Sender: FDA-Public Use
  Company Number: US-ABBOTT-11P-163-0704351-00

PATIENT
  Sex: Female

DRUGS (3)
  1. SIMVASTATIN [Concomitant]
     Indication: BLOOD CHOLESTEROL INCREASED
     Dosage: TAKES INTERMITTENTLY
  2. UNKNOWN HORMONE PILL [Concomitant]
     Indication: HOT FLUSH
     Dosage: TAKES INTERMITTENTLY
  3. SYNTHROID [Suspect]
     Indication: THYROIDECTOMY
     Route: 048
     Dates: start: 19900101

REACTIONS (2)
  - PALPITATIONS [None]
  - HEART RATE INCREASED [None]
